FAERS Safety Report 19997793 (Version 2)
Quarter: 2021Q4

REPORT INFORMATION
  Report Type: Spontaneous
  Country: US (occurrence: US)
  Receive Date: 20211026
  Receipt Date: 20211223
  Transmission Date: 20220303
  Serious: No
  Sender: FDA-Public Use
  Company Number: US-GW PHARMA-202110USGW05183

PATIENT

DRUGS (2)
  1. EPIDIOLEX [Suspect]
     Active Substance: CANNABIDIOL
     Indication: Epilepsy
     Dosage: 5.10 MG/KG/DAY, 200 MILLIGRAM, BID
     Route: 048
     Dates: start: 20200225
  2. EPIDIOLEX [Suspect]
     Active Substance: CANNABIDIOL
     Indication: Epilepsy
     Dosage: ADDITIONAL BATCH NUMBER ADDED
     Route: 048

REACTIONS (2)
  - Dental caries [Unknown]
  - Emergency care [Unknown]

NARRATIVE: CASE EVENT DATE: 20210101
